FAERS Safety Report 9356583 (Version 1)
Quarter: 2013Q2

REPORT INFORMATION
  Report Type: Report from Study
  Country: US (occurrence: US)
  Receive Date: 20130619
  Receipt Date: 20130619
  Transmission Date: 20140414
  Serious: Yes (Other)
  Sender: FDA-Public Use
  Company Number: US-US-EMD SERONO, INC.-7210532

PATIENT
  Age: 40 Year
  Sex: Female
  Weight: 67 kg

DRUGS (2)
  1. REBIF [Suspect]
     Indication: MULTIPLE SCLEROSIS
     Route: 058
     Dates: start: 20121201
  2. IBUPROFEN [Concomitant]
     Indication: PREMEDICATION

REACTIONS (3)
  - Periarthritis [Recovering/Resolving]
  - Rhinorrhoea [Recovering/Resolving]
  - Vision blurred [Not Recovered/Not Resolved]
